FAERS Safety Report 7053759-1 (Version None)
Quarter: 2010Q4

REPORT INFORMATION
  Report Type: 
  Country: None (occurrence: None)
  Receive Date: 20101020
  Receipt Date: 20101012
  Transmission Date: 20110411
  Serious: Yes (Other)
  Sender: FDA-Public Use
  Company Number: A0887250A

PATIENT
  Sex: Female

DRUGS (7)
  1. DIGOXIN [Suspect]
  2. CARDIZEM [Suspect]
     Indication: ATRIAL FIBRILLATION
     Route: 048
     Dates: start: 20100101
  3. LISINOPRIL [Suspect]
     Indication: ATRIAL FIBRILLATION
     Dosage: 20MG PER DAY
     Route: 048
     Dates: start: 20100101
  4. SYNTHROID [Suspect]
     Indication: HYPOTHYROIDISM
     Dosage: 137MCG PER DAY
     Dates: start: 20040101
  5. AZULFIDINE [Concomitant]
  6. KLOR-CON [Concomitant]
  7. SULFASALAZINE [Concomitant]

REACTIONS (7)
  - DECREASED ACTIVITY [None]
  - DEPRESSION [None]
  - DIZZINESS [None]
  - MUSCULAR WEAKNESS [None]
  - PAIN [None]
  - SEPSIS [None]
  - VISION BLURRED [None]
